FAERS Safety Report 20421322 (Version 7)
Quarter: 2022Q1

REPORT INFORMATION
  Report Type: Spontaneous
  Country: US (occurrence: US)
  Receive Date: 20220203
  Receipt Date: 20220316
  Transmission Date: 20220423
  Serious: Yes (Hospitalization)
  Sender: FDA-Public Use
  Company Number: US-CELGENE-USA-20220107571

PATIENT
  Age: 72 Year
  Sex: Male

DRUGS (1)
  1. REVLIMID [Suspect]
     Active Substance: LENALIDOMIDE
     Indication: Plasma cell myeloma
     Dosage: 15 MILLIGRAM
     Route: 048
     Dates: start: 20211020, end: 20220120

REACTIONS (8)
  - Adrenal insufficiency [Unknown]
  - Electrolyte imbalance [Unknown]
  - Blood sodium decreased [Unknown]
  - Blood pressure orthostatic decreased [Recovering/Resolving]
  - Syncope [Unknown]
  - Fall [Unknown]
  - Dehydration [Unknown]
  - Asthenia [Unknown]

NARRATIVE: CASE EVENT DATE: 20220120
